FAERS Safety Report 5103442-4 (Version None)
Quarter: 2006Q3

REPORT INFORMATION
  Report Type: 
  Country: None (occurrence: None)
  Receive Date: 20060913
  Receipt Date: 20060615
  Transmission Date: 20061208
  Serious: Yes (Life-Threatening)
  Sender: FDA-Public Use
  Company Number: 2006AP02770

PATIENT
  Age: 9811 Day
  Sex: Female
  Weight: 56.7 kg

DRUGS (15)
  1. ANAPEINE [Suspect]
     Indication: EPIDURAL ANAESTHESIA
     Route: 008
     Dates: start: 20060615
  2. ANAPEINE [Suspect]
     Route: 008
     Dates: start: 20060615
  3. ANAPEINE [Suspect]
     Route: 008
     Dates: start: 20060615
  4. ANAPEINE [Suspect]
     Route: 008
     Dates: start: 20060615
  5. ANAPEINE [Suspect]
     Route: 008
     Dates: start: 20060615
  6. ANAPEINE [Suspect]
     Route: 008
     Dates: start: 20060615
  7. ANAPEINE [Suspect]
     Route: 008
     Dates: start: 20060615
  8. ANAPEINE [Suspect]
     Route: 008
     Dates: start: 20060615
  9. FENTANEST [Suspect]
     Indication: EPIDURAL ANAESTHESIA
     Route: 008
     Dates: start: 20060615, end: 20060615
  10. PREGLANDIN [Concomitant]
     Route: 067
     Dates: start: 20060615, end: 20060615
  11. FLUMARIN [Concomitant]
     Route: 042
     Dates: start: 20060615, end: 20060615
  12. DOPAMINE HCL [Concomitant]
     Dates: start: 20060615, end: 20060615
  13. CABASER [Concomitant]
     Route: 048
     Dates: start: 20060615
  14. CALONAL [Concomitant]
     Route: 048
     Dates: start: 20060615
  15. VOLTAREN [Concomitant]
     Route: 054
     Dates: start: 20060615

REACTIONS (8)
  - ANAESTHETIC COMPLICATION [None]
  - BLOOD PRESSURE DECREASED [None]
  - CARDIAC MASSAGE [None]
  - DEPRESSED LEVEL OF CONSCIOUSNESS [None]
  - DRUG EXPOSURE DURING PREGNANCY [None]
  - DRUG INEFFECTIVE [None]
  - MUSCLE RIGIDITY [None]
  - PO2 DECREASED [None]
